FAERS Safety Report 7879231-4 (Version None)
Quarter: 2011Q4

REPORT INFORMATION
  Report Type: 
  Country: None (occurrence: None)
  Receive Date: 20111101
  Receipt Date: 20111028
  Transmission Date: 20120403
  Serious: Yes (Other)
  Sender: FDA-Public Use
  Company Number: US-PFIZER INC-2011264358

PATIENT
  Age: 25 Year
  Sex: Male
  Weight: 102 kg

DRUGS (5)
  1. ASPIRIN [Suspect]
     Indication: PAIN
     Dosage: UNK
     Dates: end: 20110101
  2. GOODYS POWDERS [Suspect]
     Indication: HEADACHE
     Dosage: UNK
     Dates: end: 20110101
  3. EXCEDRIN (MIGRAINE) [Suspect]
     Indication: MIGRAINE
     Dosage: UNK
     Dates: end: 20110101
  4. IBUPROFEN (ADVIL) [Suspect]
     Indication: HEADACHE
     Dosage: 200 MG, AS NEEDED, 3 TO 4 TIMES IN A WEEK
     Dates: start: 20110101
  5. IBUPROFEN (ADVIL) [Suspect]
     Indication: INFLAMMATION

REACTIONS (7)
  - RECTAL HAEMORRHAGE [None]
  - FATIGUE [None]
  - INFLAMMATION [None]
  - TREMOR [None]
  - FEELING ABNORMAL [None]
  - LIMB INJURY [None]
  - ASTHENIA [None]
